FAERS Safety Report 20358333 (Version 10)
Quarter: 2025Q3

REPORT INFORMATION
  Report Type: Spontaneous
  Country: IN (occurrence: IN)
  Receive Date: 20220120
  Receipt Date: 20250929
  Transmission Date: 20251020
  Serious: Yes (Hospitalization, Other)
  Sender: PFIZER
  Company Number: IN-PFIZER INC-202200037245

PATIENT
  Age: 73 Year
  Sex: Female
  Weight: 59 kg

DRUGS (9)
  1. PALBOCICLIB [Suspect]
     Active Substance: PALBOCICLIB
     Route: 048
     Dates: start: 20210529
  2. PALBOCICLIB [Suspect]
     Active Substance: PALBOCICLIB
     Dates: start: 202106
  3. PALBOCICLIB [Suspect]
     Active Substance: PALBOCICLIB
     Dates: end: 20231005
  4. PALBOCICLIB [Suspect]
     Active Substance: PALBOCICLIB
     Dates: start: 20231102
  5. PALBOCICLIB [Suspect]
     Active Substance: PALBOCICLIB
     Dosage: 125 MG, 1X/DAY
     Route: 048
  6. FASLODEX [Concomitant]
     Active Substance: FULVESTRANT
     Dates: start: 20210727
  7. CALCIUM CARBONATE\CHOLECALCIFEROL [Concomitant]
     Active Substance: CALCIUM CARBONATE\CHOLECALCIFEROL
     Dates: start: 20210727
  8. BECOZINC [ASCORBIC ACID;CALCIUM PANTOTHENATE;FOLIC ACID;NICOTINAMIDE;P [Concomitant]
     Dates: start: 20210727
  9. FULVESTRANT [Concomitant]
     Active Substance: FULVESTRANT
     Dates: start: 202106

REACTIONS (18)
  - Breast cancer recurrent [Unknown]
  - Syncope [Unknown]
  - Haemoglobin decreased [Recovering/Resolving]
  - Red blood cell count decreased [Unknown]
  - Haematocrit decreased [Unknown]
  - Mean cell haemoglobin decreased [Unknown]
  - Red cell distribution width increased [Unknown]
  - Haematocrit decreased [Unknown]
  - Mass [Unknown]
  - Asthenia [Unknown]
  - Chest pain [Unknown]
  - Hyperhidrosis [Unknown]
  - Dizziness [Unknown]
  - Pyrexia [Unknown]
  - White blood cell count decreased [Recovered/Resolved]
  - Lymphocyte count decreased [Unknown]
  - Mean cell volume decreased [Unknown]
  - Malaise [Unknown]

NARRATIVE: CASE EVENT DATE: 20210727
